FAERS Safety Report 25722127 (Version 1)
Quarter: 2025Q3

REPORT INFORMATION
  Report Type: Spontaneous
  Country: US (occurrence: None)
  Receive Date: 20250825
  Receipt Date: 20250825
  Transmission Date: 20251021
  Serious: Yes (Life-Threatening, Hospitalization)
  Sender: FDA-CTU
  Company Number: None

PATIENT

DRUGS (1)
  1. FERRLECIT [Suspect]
     Active Substance: SODIUM FERRIC GLUCONATE COMPLEX
     Indication: Iron deficiency
     Dosage: FREQUENCY : WEEKLY;?
     Route: 041
     Dates: start: 20250822, end: 20250822

REACTIONS (6)
  - Infusion related reaction [None]
  - Respiratory distress [None]
  - Back pain [None]
  - Nausea [None]
  - Muscle spasms [None]
  - Hypotension [None]

NARRATIVE: CASE EVENT DATE: 20250822
